FAERS Safety Report 9122041 (Version 2)
Quarter: 2013Q1

REPORT INFORMATION
  Report Type: Report from Study
  Country: DE (occurrence: DE)
  Receive Date: 20130227
  Receipt Date: 20130303
  Transmission Date: 20140127
  Serious: Yes (Death)
  Sender: FDA-Public Use
  Company Number: DE-BRISTOL-MYERS SQUIBB COMPANY-17399395

PATIENT
  Sex: Male
  Weight: 67 kg

DRUGS (7)
  1. ERBITUX SOLN FOR INF [Suspect]
     Indication: HEAD AND NECK CANCER
     Dosage: RECENT DOSE-04FEB13
     Route: 042
     Dates: start: 20121119, end: 20130204
  2. CISPLATIN [Concomitant]
     Indication: HEAD AND NECK CANCER
  3. 5-FLUOROURACIL [Concomitant]
     Indication: HEAD AND NECK CANCER
  4. ALOXI [Concomitant]
     Indication: PREMEDICATION
  5. EMEND [Concomitant]
     Indication: PREMEDICATION
  6. DEXAMETHASONE [Concomitant]
     Indication: PREMEDICATION
  7. ATORVASTATIN [Concomitant]
     Indication: HYPERLIPIDAEMIA
     Route: 048

REACTIONS (3)
  - Sudden death [Fatal]
  - Malaise [Fatal]
  - Dyspnoea [Fatal]
